FAERS Safety Report 7947063-4 (Version None)
Quarter: 2011Q4

REPORT INFORMATION
  Report Type: 
  Country: None (occurrence: None)
  Receive Date: 20111129
  Receipt Date: 20110830
  Transmission Date: 20120403
  Serious: No
  Sender: FDA-Public Use
  Company Number: US-ASTRAZENECA-2011SE51966

PATIENT
  Age: 49 Year
  Sex: Female

DRUGS (4)
  1. THYROID MED [Concomitant]
  2. VITAMIN D [Concomitant]
  3. VIMOVO [Suspect]
     Indication: OSTEOARTHRITIS
     Dosage: 500/20 MG MG ONCE DAILY
     Route: 048
  4. CALCIUM [Concomitant]

REACTIONS (2)
  - INAPPROPRIATE SCHEDULE OF DRUG ADMINISTRATION [None]
  - BLOOD PRESSURE INCREASED [None]
